FAERS Safety Report 5599151-8 (Version None)
Quarter: 2008Q1

REPORT INFORMATION
  Report Type: 
  Country: None (occurrence: None)
  Receive Date: 20080117
  Receipt Date: 20080109
  Transmission Date: 20080703
  Serious: Yes (Death, Hospitalization)
  Sender: FDA-Public Use
  Company Number: 20074464

PATIENT
  Age: 69 Year
  Sex: Female

DRUGS (7)
  1. LIORESAL [Suspect]
     Indication: MUSCLE SPASTICITY
     Dosage: 1325.6 MCG, DAILY, INTRATHECAL
     Route: 037
  2. LIPITOR [Concomitant]
  3. EFFEXOR [Concomitant]
  4. VESICARE [Concomitant]
  5. ATENOLOL [Concomitant]
  6. MAXIMUM GREEN [Concomitant]
  7. LEVAQUIN [Concomitant]

REACTIONS (4)
  - FAILURE TO THRIVE [None]
  - PNEUMONIA ASPIRATION [None]
  - PNEUMONITIS [None]
  - RESPIRATORY FAILURE [None]
